FAERS Safety Report 16110384 (Version 3)
Quarter: 2019Q2

REPORT INFORMATION
  Report Type: Spontaneous
  Country: US (occurrence: US)
  Receive Date: 20190325
  Receipt Date: 20190517
  Transmission Date: 20190711
  Serious: No
  Sender: FDA-Public Use
  Company Number: US-JNJFOC-20190238286

PATIENT
  Sex: Female
  Weight: 47.17 kg

DRUGS (2)
  1. TYLENOL EXTRA STRENGTH [Suspect]
     Active Substance: ACETAMINOPHEN
     Indication: PAIN
     Dosage: TAKES 2 EVERY 10-12 HOURS.
     Route: 048
  2. TYLENOL EXTRA STRENGTH [Suspect]
     Active Substance: ACETAMINOPHEN
     Indication: PYREXIA
     Dosage: TAKES 2 EVERY 10-12 HOURS.
     Route: 048

REACTIONS (2)
  - Vision blurred [Recovered/Resolved]
  - Inappropriate schedule of product administration [Unknown]
